FAERS Safety Report 6236960-6 (Version None)
Quarter: 2009Q2

REPORT INFORMATION
  Report Type: 
  Country: None (occurrence: None)
  Receive Date: 20090619
  Receipt Date: 20090227
  Transmission Date: 20091009
  Serious: No
  Sender: FDA-Public Use
  Company Number: US-ASTRAZENECA-2009UW05565

PATIENT
  Age: 80 Year
  Sex: Female
  Weight: 63.5 kg

DRUGS (9)
  1. SYMBICORT [Suspect]
     Dosage: 160/4.5, UG,2 PUFFS, BID
     Route: 055
     Dates: start: 20081227
  2. COUMADIN [Concomitant]
  3. DIGOXIN [Concomitant]
  4. ATENOLOL [Concomitant]
  5. CYTOTEC [Concomitant]
  6. RELAFEN [Concomitant]
  7. NEURONTIN [Concomitant]
  8. LEVITRA [Concomitant]
  9. LASIX [Concomitant]

REACTIONS (3)
  - EYE IRRITATION [None]
  - EYE PAIN [None]
  - VISUAL ACUITY REDUCED [None]
